FAERS Safety Report 14232445 (Version 1)
Quarter: 2017Q4

REPORT INFORMATION
  Report Type: Spontaneous
  Country: US (occurrence: US)
  Receive Date: 20171128
  Receipt Date: 20171128
  Transmission Date: 20180321
  Serious: No
  Sender: FDA-Public Use
  Company Number: US-TAIHO ONCOLOGY INC-EU-2017-01458

PATIENT
  Age: 52 Year
  Sex: Female

DRUGS (1)
  1. LONSURF [Suspect]
     Active Substance: TIPIRACIL HYDROCHLORIDE\TRIFLURIDINE
     Indication: COLON NEOPLASM
     Route: 048
     Dates: start: 20170831

REACTIONS (3)
  - Vomiting [Unknown]
  - Neuropathy peripheral [Unknown]
  - Nausea [Unknown]

NARRATIVE: CASE EVENT DATE: 201711
